FAERS Safety Report 6189699-X (Version None)
Quarter: 2009Q2

REPORT INFORMATION
  Report Type: 
  Country: None (occurrence: None)
  Receive Date: 20090512
  Receipt Date: 20090512
  Transmission Date: 20091009
  Serious: Yes (Hospitalization)
  Sender: FDA-Public Use
  Company Number: None

PATIENT
  Age: 44 Year
  Sex: Male
  Weight: 130 kg

DRUGS (4)
  1. ULTRA 90 PM [Suspect]
     Indication: MEDICAL DIET
     Dosage: 3 TABLETS AT BEDTIME OROPHARINGEAL
     Route: 049
     Dates: start: 20090404, end: 20090426
  2. MULTI-VITAMIN [Concomitant]
  3. GLUCOSAMINE CHONDROITIN [Concomitant]
  4. LOVAZA [Concomitant]

REACTIONS (1)
  - PANCREATITIS ACUTE [None]
